FAERS Safety Report 7803105-8 (Version None)
Quarter: 2011Q4

REPORT INFORMATION
  Report Type: 
  Country: None (occurrence: None)
  Receive Date: 20111007
  Receipt Date: 20110927
  Transmission Date: 20120403
  Serious: Yes (Other)
  Sender: FDA-Public Use
  Company Number: CA-JNJFOC-20111000286

PATIENT
  Sex: Female
  Weight: 105 kg

DRUGS (11)
  1. MULTIPLE VITAMIN [Concomitant]
  2. OMEGA FISH OILS [Concomitant]
  3. REMICADE [Suspect]
     Indication: PSORIASIS
     Dosage: 43 INFUSIONS
     Route: 042
  4. WARFARIN SODIUM [Concomitant]
  5. SYNTHROID [Concomitant]
  6. RABEPRAZOLE SODIUM [Concomitant]
  7. LYRICA [Concomitant]
  8. ATORVASTATIN [Concomitant]
  9. FOLIC ACID [Concomitant]
     Dosage: MONDAY TO SATURDAY
  10. METHOTREXATE [Concomitant]
  11. BISOPROLOL [Concomitant]

REACTIONS (1)
  - TRANSIENT ISCHAEMIC ATTACK [None]
